FAERS Safety Report 4283768-7 (Version None)
Quarter: 2004Q1

REPORT INFORMATION
  Report Type: 
  Country: None (occurrence: None)
  Receive Date: 20040115
  Receipt Date: 20021211
  Transmission Date: 20041129
  Serious: Yes (Other)
  Sender: FDA-Public Use
  Company Number: NSADSS2002036985

PATIENT
  Age: 50 Year
  Sex: Female

DRUGS (11)
  1. DOXIL [Suspect]
     Indication: OVARIAN CANCER
     Dosage: 90 MG, 1 IN 4 WEEK, INTRAVENOUS DRIP
     Route: 041
     Dates: start: 20020715, end: 20020923
  2. OXYCONTIN (UNSPECIFIED) OXYCODONE HYDROCHLORIDE [Concomitant]
  3. ATIVAN (UNSPECIFIED) LORAZEPAM [Concomitant]
  4. DARVOCET (PROPACET) [Concomitant]
  5. PAXIL (PAROXETINE HYDROCHLORIDE) UNSPECIFIED [Concomitant]
  6. PROTONIX [Concomitant]
  7. REGLAN [Concomitant]
  8. ANZEMET (DOLASETRON MESILATE) [Concomitant]
  9. DECACDRON (DEXAMETHASONE) [Concomitant]
  10. BENADRYL [Concomitant]
  11. PROCRIT (ERYTHROPOIETIN) [Concomitant]

REACTIONS (2)
  - CONDITION AGGRAVATED [None]
  - PALMAR-PLANTAR ERYTHRODYSAESTHESIA SYNDROME [None]
